FAERS Safety Report 5386076-6 (Version None)
Quarter: 2007Q3

REPORT INFORMATION
  Report Type: 
  Country: None (occurrence: None)
  Receive Date: 20070710
  Receipt Date: 20070625
  Transmission Date: 20080115
  Serious: Yes (Other)
  Sender: FDA-Public Use
  Company Number: SPV1-2007-03483

PATIENT
  Sex: Male

DRUGS (1)
  1. LIALDA [Suspect]
     Dates: start: 20070401, end: 20070401

REACTIONS (3)
  - ANTINUCLEAR ANTIBODY POSITIVE [None]
  - BIOPSY LIVER ABNORMAL [None]
  - HEPATITIS [None]
